FAERS Safety Report 7046154-2 (Version None)
Quarter: 2010Q4

REPORT INFORMATION
  Report Type: 
  Country: None (occurrence: None)
  Receive Date: 20101014
  Receipt Date: 20101005
  Transmission Date: 20110411
  Serious: Yes (Death)
  Sender: FDA-Public Use
  Company Number: NZ-PFIZER INC-2010022804

PATIENT
  Age: 61 Year

DRUGS (1)
  1. VARENICLINE TARTRATE [Suspect]
     Dosage: UNK

REACTIONS (3)
  - ARTERIAL THROMBOSIS LIMB [None]
  - LUNG NEOPLASM MALIGNANT [None]
  - RESPIRATORY FAILURE [None]
